FAERS Safety Report 8507804-4 (Version None)
Quarter: 2012Q3

REPORT INFORMATION
  Report Type: 
  Country: None (occurrence: None)
  Receive Date: 20120713
  Receipt Date: 20120710
  Transmission Date: 20120928
  Serious: Yes (Death)
  Sender: FDA-Public Use
  Company Number: PHHY2012DK059279

PATIENT
  Sex: Male
  Weight: 52 kg

DRUGS (3)
  1. CARBAMAZEPINE [Suspect]
     Indication: EPILEPSY
     Dosage: 200 AND 400 MG (DAILY DOSE 600 MG)
  2. CLOBAZAM [Suspect]
     Indication: EPILEPSY
     Dosage: 10 MG, QD
  3. VIMPAT [Suspect]
     Indication: EPILEPSY
     Dosage: 200 MG BID
     Dates: start: 20111013

REACTIONS (4)
  - RESTLESSNESS [None]
  - CONVULSION [None]
  - INSOMNIA [None]
  - ASPHYXIA [None]
